FAERS Safety Report 20791420 (Version 1)
Quarter: 2022Q2

REPORT INFORMATION
  Report Type: Spontaneous
  Country: US (occurrence: US)
  Receive Date: 20220505
  Receipt Date: 20220505
  Transmission Date: 20220721
  Serious: Yes (Other)
  Sender: FDA-Public Use
  Company Number: US-GILEAD-2022-0580250

PATIENT
  Age: 70 Year
  Sex: Male
  Weight: 71 kg

DRUGS (1)
  1. YESCARTA [Suspect]
     Active Substance: AXICABTAGENE CILOLEUCEL
     Indication: Diffuse large B-cell lymphoma
     Dosage: UNK, ONCE
     Route: 042
     Dates: start: 20220321, end: 20220321

REACTIONS (11)
  - Hallucination, visual [Unknown]
  - Incontinence [Recovered/Resolved]
  - Confusional state [Unknown]
  - Hypoalbuminaemia [Recovered/Resolved]
  - Fatigue [Unknown]
  - Memory impairment [Unknown]
  - Tremor [Unknown]
  - Decreased appetite [Unknown]
  - Headache [Recovered/Resolved]
  - Agitation [Recovered/Resolved]
  - Somnolence [Recovered/Resolved]

NARRATIVE: CASE EVENT DATE: 20220322
